FAERS Safety Report 8542995-0 (Version None)
Quarter: 2012Q3

REPORT INFORMATION
  Report Type: 
  Country: None (occurrence: None)
  Receive Date: 20120727
  Receipt Date: 20120716
  Transmission Date: 20120928
  Serious: Yes (Other)
  Sender: FDA-Public Use
  Company Number: NL-ACCORD-014141

PATIENT
  Age: 37 Year
  Sex: Female

DRUGS (4)
  1. TOPIRAMATE [Suspect]
     Indication: MIGRAINE PROPHYLAXIS
     Dosage: PATIENT START FROM 50MG/DAY THEN DOSE INCREASED TO 75 MG/DAY THEN DOSE REDUCED TO 50 MG/DAY.
  2. METOPROLOL SUCCINATE [Concomitant]
  3. ORAL CONTRACEPTIVE NOS [Concomitant]
     Dosage: PILLS
     Route: 048
  4. RIZATRIPTAN [Concomitant]

REACTIONS (2)
  - ANORGASMIA [None]
  - OFF LABEL USE [None]
